APPROVED DRUG PRODUCT: CYSTOGRAFIN
Active Ingredient: DIATRIZOATE MEGLUMINE
Strength: 30%
Dosage Form/Route: SOLUTION;URETHRAL
Application: N010040 | Product #018
Applicant: BRACCO DIAGNOSTICS INC
Approved: Approved Prior to Jan 1, 1982 | RLD: Yes | RS: No | Type: RX